FAERS Safety Report 5413249-6 (Version None)
Quarter: 2007Q3

REPORT INFORMATION
  Report Type: 
  Country: None (occurrence: None)
  Receive Date: 20070717
  Receipt Date: 20060719
  Transmission Date: 20080115
  Serious: Yes (Hospitalization, Other)
  Sender: FDA-Public Use
  Company Number: HQWYE161819JUL06

PATIENT
  Age: 41 Year
  Sex: Male
  Weight: 71.28 kg

DRUGS (3)
  1. ADVIL [Suspect]
  2. LUNESTA [Suspect]
     Dosage: 2 MG AT BEDTIME, ORAL
     Route: 048
     Dates: start: 20060301, end: 20060510
  3. XYREM [Suspect]

REACTIONS (1)
  - MENINGITIS ASEPTIC [None]
